FAERS Safety Report 21425821 (Version 2)
Quarter: 2022Q4

REPORT INFORMATION
  Report Type: Report from Study
  Country: US (occurrence: US)
  Receive Date: 20221008
  Receipt Date: 20221202
  Transmission Date: 20230112
  Serious: Yes (Hospitalization, Other)
  Sender: FDA-Public Use
  Company Number: US-NOVARTISPH-NVSC2022US225503

PATIENT
  Sex: Female

DRUGS (1)
  1. ENTRESTO [Suspect]
     Active Substance: SACUBITRIL\VALSARTAN
     Indication: Product used for unknown indication
     Dosage: UNK (TOOK SOME FOR A PERIOD OF TIME)
     Route: 048
     Dates: start: 202206

REACTIONS (5)
  - Hypotension [Not Recovered/Not Resolved]
  - Loss of consciousness [Unknown]
  - Cardiac failure [Unknown]
  - Feeling cold [Unknown]
  - Dizziness [Unknown]
